FAERS Safety Report 7435638-0 (Version None)
Quarter: 2011Q2

REPORT INFORMATION
  Report Type: 
  Country: None (occurrence: None)
  Receive Date: 20110425
  Receipt Date: 20110421
  Transmission Date: 20111010
  Serious: Yes (Other)
  Sender: FDA-Public Use
  Company Number: CA-ELI_LILLY_AND_COMPANY-CA201104006212

PATIENT
  Age: 73 Year
  Sex: Male

DRUGS (2)
  1. HUMULIN 70/30 [Suspect]
     Dosage: 30 U, EACH MORNING
  2. HUMULIN 70/30 [Suspect]
     Dosage: 60 U, OTHER

REACTIONS (1)
  - CEREBROVASCULAR ACCIDENT [None]
